FAERS Safety Report 19152380 (Version 1)
Quarter: 2021Q2

REPORT INFORMATION
  Report Type: Spontaneous
  Country: DE (occurrence: DE)
  Receive Date: 20210419
  Receipt Date: 20210419
  Transmission Date: 20210717
  Serious: Yes (Hospitalization, Disabling)
  Sender: FDA-Public Use
  Company Number: DE-MICRO LABS LIMITED-ML2021-01091

PATIENT
  Age: 75 Year
  Sex: Female

DRUGS (12)
  1. DULOXETIN [Suspect]
     Active Substance: DULOXETINE
     Dosage: 30 MG, 1?0?0?0, KAPSELN
  2. ROTIGOTIN [Concomitant]
     Active Substance: ROTIGOTINE
     Dosage: 4 MG/D, 1?0?0?0, PFLASTER TRANSDERMAL
     Route: 062
  3. TAPENTADOL [Suspect]
     Active Substance: TAPENTADOL
     Dosage: 50 MG, 1?0?1?0, RETARD?TABLETTEN
  4. CINNARIZIN/DIMENHYDRINAT [Concomitant]
     Dosage: 20/40 MG, 1?1?1?0, TABLETTEN
  5. VALSARTAN. [Concomitant]
     Active Substance: VALSARTAN
     Dosage: 80 MG, 0.5?0?2?0, TABLETTEN
  6. RIVASTIGMIN [Suspect]
     Active Substance: RIVASTIGMINE
     Dosage: 9.5 MG, 1?0?0?0
  7. RASAGILINE. [Suspect]
     Active Substance: RASAGILINE
     Dosage: 1 MG, 1?0?0?0, TABLETTEN
  8. ROTIGOTIN [Concomitant]
     Active Substance: ROTIGOTINE
     Dosage: 8S MG/D, 1?0?0?0, PFLASTER TRANSDERMAL
     Route: 062
  9. TROSPIUM [Concomitant]
     Active Substance: TROSPIUM
     Dosage: 30 MG, 0.5?0?0.5?0, TABLETTEN
  10. PANTOPRAZOL [Concomitant]
     Active Substance: PANTOPRAZOLE SODIUM
     Dosage: 40 MG, BEDARF, TABLETTEN
  11. CARBIDOPA/LEVODOPA [Concomitant]
     Active Substance: CARBIDOPA\LEVODOPA
     Dosage: 25/100 MG, 1?1?1?1, TABLETTEN
  12. METOPROLOL. [Concomitant]
     Active Substance: METOPROLOL
     Dosage: 23.75 MG, 1?0?0?0, RETARD?TABLETTEN

REACTIONS (8)
  - Hypertensive crisis [Unknown]
  - Pallor [Unknown]
  - Labelled drug-drug interaction medication error [Unknown]
  - Haematemesis [Unknown]
  - Hypertension [Unknown]
  - Tremor [Unknown]
  - Product prescribing error [Unknown]
  - Asthenia [Unknown]
